FAERS Safety Report 9602761 (Version 3)
Quarter: 2013Q4

REPORT INFORMATION
  Report Type: Spontaneous
  Country: GB (occurrence: GB)
  Receive Date: 20131007
  Receipt Date: 20131127
  Transmission Date: 20140711
  Serious: Yes (Hospitalization, Disabling, Other)
  Sender: FDA-Public Use
  Company Number: PHFR2013GB002732

PATIENT
  Sex: Male

DRUGS (2)
  1. CLOZARIL [Suspect]
     Indication: SCHIZOPHRENIA
     Dosage: UNK UKN, UNK
     Route: 048
     Dates: start: 20130415
  2. CLOZARIL [Suspect]
     Dosage: UNK UKN, UNK
     Route: 048
     Dates: start: 20130724

REACTIONS (5)
  - Hypersensitivity [Not Recovered/Not Resolved]
  - Face oedema [Not Recovered/Not Resolved]
  - Idiopathic urticaria [Not Recovered/Not Resolved]
  - Angioedema [Unknown]
  - Blister [Not Recovered/Not Resolved]
